FAERS Safety Report 8481774-X (Version None)
Quarter: 2012Q3

REPORT INFORMATION
  Report Type: 
  Country: None (occurrence: None)
  Receive Date: 20120702
  Receipt Date: 20120626
  Transmission Date: 20120928
  Serious: Yes (Death)
  Sender: FDA-Public Use
  Company Number: CA-CELGENEUS-028-21880-12063615

PATIENT
  Sex: Female

DRUGS (14)
  1. FLOVENT [Concomitant]
     Route: 065
  2. CITALOPRAM HYDROBROMIDE [Concomitant]
     Route: 065
  3. VITAMIN B-12 [Concomitant]
     Route: 065
  4. SENNA-MINT WAF [Concomitant]
     Route: 065
  5. ATIVAN [Concomitant]
     Route: 065
  6. PANTOPRAZOLE SODIUM [Concomitant]
     Route: 065
  7. REVLIMID [Suspect]
     Indication: MULTIPLE MYELOMA
     Dosage: 10 MILLIGRAM
     Route: 048
     Dates: start: 20120604
  8. ATACAND [Concomitant]
     Route: 065
  9. ALBUTEROL SULATE [Concomitant]
     Route: 065
  10. DECADRON [Concomitant]
     Route: 065
  11. PAMIDRONATE DISODIUM [Concomitant]
     Route: 065
  12. ADALAT CC [Concomitant]
     Route: 065
  13. NOVAGESIC [Concomitant]
     Route: 065
  14. SYNTHROID [Concomitant]
     Route: 065

REACTIONS (1)
  - DEATH [None]
